FAERS Safety Report 15469137 (Version 1)
Quarter: 2018Q4

REPORT INFORMATION
  Report Type: Spontaneous
  Country: US (occurrence: US)
  Receive Date: 20181005
  Receipt Date: 20181005
  Transmission Date: 20190205
  Serious: Yes (Other)
  Sender: FDA-Public Use
  Company Number: US-JNJFOC-20180934391

PATIENT

DRUGS (4)
  1. ETANERCEPT [Suspect]
     Active Substance: ETANERCEPT
     Indication: SCLERITIS
     Route: 065
  2. INFLIXIMAB, RECOMBINANT [Suspect]
     Active Substance: INFLIXIMAB
     Indication: SCLERITIS
     Route: 042
  3. ADALIMUMAB [Suspect]
     Active Substance: ADALIMUMAB
     Indication: SCLERITIS
     Route: 065
  4. GOLIMUMAB [Suspect]
     Active Substance: GOLIMUMAB
     Indication: SCLERITIS
     Route: 058

REACTIONS (8)
  - Treatment failure [Unknown]
  - Off label use [Unknown]
  - Infusion related reaction [Unknown]
  - Cataract subcapsular [Unknown]
  - Product use in unapproved indication [Unknown]
  - Ocular hypertension [Unknown]
  - Scleritis [Unknown]
  - Headache [Unknown]
